FAERS Safety Report 23338305 (Version 2)
Quarter: 2024Q1

REPORT INFORMATION
  Report Type: Report from Study
  Country: ES (occurrence: ES)
  Receive Date: 20231226
  Receipt Date: 20240109
  Transmission Date: 20240410
  Serious: Yes (Hospitalization, Other)
  Sender: FDA-Public Use
  Company Number: ES-CELLTRION INC.-2023ES024283

PATIENT

DRUGS (6)
  1. RITUXIMAB [Suspect]
     Active Substance: RITUXIMAB
     Indication: Diffuse large B-cell lymphoma
     Dosage: 605 MG, EVERY 3 WEEKS
     Route: 042
     Dates: start: 20231023
  2. CYCLOPHOSPHAMIDE [Suspect]
     Active Substance: CYCLOPHOSPHAMIDE
     Indication: Diffuse large B-cell lymphoma
     Dosage: 1211 MG, EVERY 3 WEEKS
     Route: 042
     Dates: start: 20231023
  3. VINCRISTINE [Suspect]
     Active Substance: VINCRISTINE
     Indication: Diffuse large B-cell lymphoma
     Dosage: 2 MG, EVERY 3 WEEKS
     Route: 042
     Dates: start: 20231023
  4. DOXORUBICIN [Suspect]
     Active Substance: DOXORUBICIN
     Indication: Diffuse large B-cell lymphoma
     Dosage: 81 MG, EVERY 3 WEEKS
     Route: 042
     Dates: start: 20231023
  5. PREDNISONE [Suspect]
     Active Substance: PREDNISONE
     Indication: Diffuse large B-cell lymphoma
     Dosage: 100 MG C1-6, D1-5, EVERY 1 DAYS
     Route: 048
     Dates: start: 20231023
  6. EPCORITAMAB [Concomitant]
     Active Substance: EPCORITAMAB
     Indication: Diffuse large B-cell lymphoma

REACTIONS (1)
  - Acute myocardial infarction [Not Recovered/Not Resolved]

NARRATIVE: CASE EVENT DATE: 20231030
